FAERS Safety Report 7515986-6 (Version None)
Quarter: 2011Q2

REPORT INFORMATION
  Report Type: 
  Country: None (occurrence: None)
  Receive Date: 20110520
  Receipt Date: 20110511
  Transmission Date: 20111010
  Serious: Yes (Hospitalization)
  Sender: FDA-Public Use
  Company Number: UTC-007045

PATIENT
  Age: 70 Year

DRUGS (1)
  1. REMODULIN [Suspect]
     Dosage: 64.8 UG/KG (0.045 UG/KG, 1 IN 1 MIN, INTRAVENOUS
     Route: 042

REACTIONS (1)
  - RECTAL HAEMORRHAGE [None]
